FAERS Safety Report 8129690-7 (Version None)
Quarter: 2012Q1

REPORT INFORMATION
  Report Type: 
  Country: None (occurrence: None)
  Receive Date: 20120210
  Receipt Date: 20120207
  Transmission Date: 20120608
  Serious: Yes (Disabling, Other)
  Sender: FDA-Public Use
  Company Number: US-ELI_LILLY_AND_COMPANY-US201201002853

PATIENT
  Sex: Male

DRUGS (3)
  1. HUMULIN N [Suspect]
     Indication: DIABETES MELLITUS
     Dosage: 22 U, BID
     Dates: start: 20100701
  2. HUMULIN N [Suspect]
     Dosage: 22 U, BID
     Dates: start: 20100701
  3. NOVOLIN 70/30 [Concomitant]
     Dosage: UNK

REACTIONS (5)
  - VISUAL ACUITY REDUCED [None]
  - INJECTION SITE HAEMORRHAGE [None]
  - BLOOD GLUCOSE FLUCTUATION [None]
  - CATARACT OPERATION [None]
  - EYE OPERATION [None]
